FAERS Safety Report 22369232 (Version 7)
Quarter: 2023Q4

REPORT INFORMATION
  Report Type: Report from Study
  Country: US (occurrence: None)
  Receive Date: 20230525
  Receipt Date: 20231109
  Transmission Date: 20240110
  Serious: Yes (Hospitalization)
  Sender: FDA-Public Use
  Company Number: US-ROCHE-3354964

PATIENT
  Age: 63 Year
  Sex: Female
  Weight: 85 kg

DRUGS (138)
  1. BEVACIZUMAB [Suspect]
     Active Substance: BEVACIZUMAB
     Indication: Colorectal cancer
     Dosage: LAST DOSE PRIOR TO THE EVENTS ONSET ADMINISTERED ON 22-MAR-2023 422 MG IV
     Route: 042
     Dates: start: 20221115, end: 20221115
  2. BEVACIZUMAB [Suspect]
     Active Substance: BEVACIZUMAB
     Dosage: LAST DOSE PRIOR TO THE EVENTS ONSET ADMINISTERED ON 22-MAR-2023 422 MG IV
     Route: 042
     Dates: start: 20221213, end: 20221213
  3. BEVACIZUMAB [Suspect]
     Active Substance: BEVACIZUMAB
     Dosage: LAST DOSE PRIOR TO THE EVENTS ONSET ADMINISTERED ON 22-MAR-2023 422 MG IV
     Route: 042
     Dates: start: 20221227, end: 20221227
  4. BEVACIZUMAB [Suspect]
     Active Substance: BEVACIZUMAB
     Dosage: LAST DOSE PRIOR TO THE EVENTS ONSET ADMINISTERED ON 22-MAR-2023 422 MG IV
     Route: 042
     Dates: start: 20230113, end: 20230113
  5. BEVACIZUMAB [Suspect]
     Active Substance: BEVACIZUMAB
     Dosage: LAST DOSE PRIOR TO THE EVENTS ONSET ADMINISTERED ON 22-MAR-2023 422 MG IV
     Route: 042
     Dates: start: 20230125, end: 20230125
  6. BEVACIZUMAB [Suspect]
     Active Substance: BEVACIZUMAB
     Dosage: LAST DOSE PRIOR TO THE EVENTS ONSET ADMINISTERED ON 22-MAR-2023 422 MG IV
     Route: 042
     Dates: start: 20230208, end: 20230208
  7. BEVACIZUMAB [Suspect]
     Active Substance: BEVACIZUMAB
     Dosage: LAST DOSE PRIOR TO THE EVENTS ONSET ADMINISTERED ON 22-MAR-2023 422 MG IV
     Route: 042
     Dates: start: 20230222, end: 20230222
  8. BEVACIZUMAB [Suspect]
     Active Substance: BEVACIZUMAB
     Dosage: LAST DOSE PRIOR TO THE EVENTS ONSET ADMINISTERED ON 22-MAR-2023 422 MG IV
     Route: 042
     Dates: start: 20230308, end: 20230308
  9. BEVACIZUMAB [Suspect]
     Active Substance: BEVACIZUMAB
     Dosage: LAST DOSE PRIOR TO THE EVENTS ONSET ADMINISTERED ON 22-MAR-2023 422 MG IV
     Route: 042
     Dates: start: 20230322, end: 20230322
  10. ETRUMADENANT [Suspect]
     Active Substance: ETRUMADENANT
     Indication: Colorectal cancer
     Dosage: SINGLE DOSE, THE LAST DOSE PRIOR TO THE EVENTS ONSET ADMINISTERED ON 22/MAR/2023,
     Route: 048
     Dates: start: 20221116, end: 20221212
  11. ETRUMADENANT [Suspect]
     Active Substance: ETRUMADENANT
     Dosage: SINGLE DOSE, THE LAST DOSE PRIOR TO THE EVENTS ONSET ADMINISTERED ON 22/MAR/2023,
     Route: 048
     Dates: start: 20221212, end: 20221212
  12. ETRUMADENANT [Suspect]
     Active Substance: ETRUMADENANT
     Route: 048
     Dates: start: 20221213, end: 20230110
  13. ETRUMADENANT [Suspect]
     Active Substance: ETRUMADENANT
     Dosage: SINGLE DOSE, THE LAST DOSE PRIOR TO THE EVENTS ONSET ADMINISTERED ON 22/MAR/2023,
     Route: 048
     Dates: start: 20221214, end: 20230110
  14. ETRUMADENANT [Suspect]
     Active Substance: ETRUMADENANT
     Route: 048
     Dates: start: 20221216, end: 20230110
  15. ETRUMADENANT [Suspect]
     Active Substance: ETRUMADENANT
     Dosage: SINGLE DOSE, THE LAST DOSE PRIOR TO THE EVENTS ONSET ADMINISTERED ON 22/MAR/2023,
     Route: 048
     Dates: start: 20221226, end: 20230110
  16. ETRUMADENANT [Suspect]
     Active Substance: ETRUMADENANT
     Route: 048
     Dates: start: 20221227, end: 20230110
  17. ETRUMADENANT [Suspect]
     Active Substance: ETRUMADENANT
     Route: 048
     Dates: start: 20221228, end: 20230110
  18. ETRUMADENANT [Suspect]
     Active Substance: ETRUMADENANT
     Route: 048
     Dates: start: 20230110, end: 20230110
  19. ETRUMADENANT [Suspect]
     Active Substance: ETRUMADENANT
     Route: 048
     Dates: start: 20230111, end: 20230206
  20. ETRUMADENANT [Suspect]
     Active Substance: ETRUMADENANT
     Route: 048
     Dates: start: 20230112, end: 20230206
  21. ETRUMADENANT [Suspect]
     Active Substance: ETRUMADENANT
     Route: 048
     Dates: start: 20230113, end: 20230206
  22. ETRUMADENANT [Suspect]
     Active Substance: ETRUMADENANT
     Route: 048
     Dates: start: 20230114, end: 20230206
  23. ETRUMADENANT [Suspect]
     Active Substance: ETRUMADENANT
     Route: 048
     Dates: start: 20230124, end: 20230206
  24. ETRUMADENANT [Suspect]
     Active Substance: ETRUMADENANT
     Route: 048
     Dates: start: 20230125, end: 20230206
  25. ETRUMADENANT [Suspect]
     Active Substance: ETRUMADENANT
     Route: 048
     Dates: start: 20230126, end: 20230206
  26. ETRUMADENANT [Suspect]
     Active Substance: ETRUMADENANT
     Route: 048
     Dates: start: 20230206, end: 20230206
  27. ETRUMADENANT [Suspect]
     Active Substance: ETRUMADENANT
     Route: 048
     Dates: start: 20230208, end: 20230307
  28. ETRUMADENANT [Suspect]
     Active Substance: ETRUMADENANT
     Route: 048
     Dates: start: 20230209, end: 20230307
  29. ETRUMADENANT [Suspect]
     Active Substance: ETRUMADENANT
     Route: 048
     Dates: start: 20230221, end: 20230307
  30. ETRUMADENANT [Suspect]
     Active Substance: ETRUMADENANT
     Route: 048
     Dates: start: 20230222, end: 20230307
  31. ETRUMADENANT [Suspect]
     Active Substance: ETRUMADENANT
     Route: 048
     Dates: start: 20230223, end: 20230307
  32. ETRUMADENANT [Suspect]
     Active Substance: ETRUMADENANT
     Route: 048
     Dates: start: 20230307, end: 20230307
  33. ETRUMADENANT [Suspect]
     Active Substance: ETRUMADENANT
     Route: 048
     Dates: start: 20230308, end: 20230322
  34. ETRUMADENANT [Suspect]
     Active Substance: ETRUMADENANT
     Route: 048
     Dates: start: 20230319, end: 20230322
  35. ETRUMADENANT [Suspect]
     Active Substance: ETRUMADENANT
     Route: 048
     Dates: start: 20230321, end: 20230322
  36. ETRUMADENANT [Suspect]
     Active Substance: ETRUMADENANT
     Route: 048
     Dates: start: 20230322, end: 20230322
  37. ETRUMADENANT [Suspect]
     Active Substance: ETRUMADENANT
     Route: 048
     Dates: start: 20230503, end: 20230503
  38. ETRUMADENANT [Suspect]
     Active Substance: ETRUMADENANT
     Route: 048
     Dates: start: 20230718, end: 20230718
  39. ETRUMADENANT [Suspect]
     Active Substance: ETRUMADENANT
     Route: 048
     Dates: start: 20230719, end: 20230719
  40. ZIMBERELIMAB [Suspect]
     Active Substance: ZIMBERELIMAB
     Indication: Colorectal cancer
     Dosage: THE LAST DOSE PRIOR TO THE EVENTS ONSET ADMINISTERED ON 08/MAR/2023
     Route: 041
     Dates: start: 20221115, end: 20221115
  41. ZIMBERELIMAB [Suspect]
     Active Substance: ZIMBERELIMAB
     Route: 041
     Dates: start: 20221213, end: 20221213
  42. ZIMBERELIMAB [Suspect]
     Active Substance: ZIMBERELIMAB
     Dosage: THE LAST DOSE PRIOR TO THE EVENTS ONSET ADMINISTERED ON 08/MAR/2023
     Route: 041
     Dates: start: 20230111, end: 20230111
  43. ZIMBERELIMAB [Suspect]
     Active Substance: ZIMBERELIMAB
     Route: 041
     Dates: start: 20230208, end: 20230208
  44. ZIMBERELIMAB [Suspect]
     Active Substance: ZIMBERELIMAB
     Route: 041
     Dates: start: 20230308, end: 20230308
  45. ZIMBERELIMAB [Suspect]
     Active Substance: ZIMBERELIMAB
     Route: 041
     Dates: start: 20230517, end: 20230517
  46. ZIMBERELIMAB [Suspect]
     Active Substance: ZIMBERELIMAB
     Route: 041
     Dates: start: 20230719, end: 20230719
  47. LEUCOVORIN [Suspect]
     Active Substance: LEUCOVORIN\LEUCOVORIN CALCIUM
     Indication: Colorectal cancer
     Dosage: SINGLE DOSE
     Route: 041
     Dates: start: 20221115, end: 20221115
  48. LEUCOVORIN [Suspect]
     Active Substance: LEUCOVORIN\LEUCOVORIN CALCIUM
     Dosage: SINGLE DOSE
     Route: 041
     Dates: start: 20221213, end: 20221213
  49. LEUCOVORIN [Suspect]
     Active Substance: LEUCOVORIN\LEUCOVORIN CALCIUM
     Dosage: SINGLE DOSE
     Route: 041
     Dates: start: 20221227, end: 20221227
  50. LEUCOVORIN [Suspect]
     Active Substance: LEUCOVORIN\LEUCOVORIN CALCIUM
     Dosage: SINGLE DOSE
     Route: 041
     Dates: start: 20230111, end: 20230111
  51. LEUCOVORIN [Suspect]
     Active Substance: LEUCOVORIN\LEUCOVORIN CALCIUM
     Dosage: SINGLE DOSE
     Route: 041
     Dates: start: 20230125, end: 20230125
  52. LEUCOVORIN [Suspect]
     Active Substance: LEUCOVORIN\LEUCOVORIN CALCIUM
     Dosage: SINGLE DOSE
     Route: 041
     Dates: start: 20230208, end: 20230208
  53. LEUCOVORIN [Suspect]
     Active Substance: LEUCOVORIN\LEUCOVORIN CALCIUM
     Dosage: SINGLE DOSE
     Route: 041
     Dates: start: 20230222, end: 20230222
  54. LEUCOVORIN [Suspect]
     Active Substance: LEUCOVORIN\LEUCOVORIN CALCIUM
     Dosage: SINGLE DOSE
     Route: 041
     Dates: start: 20230308, end: 20230308
  55. LEUCOVORIN [Suspect]
     Active Substance: LEUCOVORIN\LEUCOVORIN CALCIUM
     Dosage: SINGLE DOSE
     Route: 041
     Dates: start: 20230322, end: 20230322
  56. LEUCOVORIN [Suspect]
     Active Substance: LEUCOVORIN\LEUCOVORIN CALCIUM
     Dosage: SINGLE DOSE
     Route: 041
     Dates: start: 20230419, end: 20230419
  57. LEUCOVORIN [Suspect]
     Active Substance: LEUCOVORIN\LEUCOVORIN CALCIUM
     Dosage: SINGLE DOSE
     Route: 041
     Dates: start: 20230503, end: 20230503
  58. FLUOROURACIL [Suspect]
     Active Substance: FLUOROURACIL
     Indication: Colorectal cancer
     Dosage: SINGLE DOSE
     Route: 041
     Dates: start: 20221115, end: 20221115
  59. FLUOROURACIL [Suspect]
     Active Substance: FLUOROURACIL
     Dosage: SINGLE DOSE
     Route: 040
     Dates: start: 20221115, end: 20221115
  60. FLUOROURACIL [Suspect]
     Active Substance: FLUOROURACIL
     Dosage: SINGLE DOSE
     Route: 041
     Dates: start: 20221213, end: 20221213
  61. FLUOROURACIL [Suspect]
     Active Substance: FLUOROURACIL
     Dosage: SINGLE DOSE
     Route: 040
     Dates: start: 20221213, end: 20221213
  62. FLUOROURACIL [Suspect]
     Active Substance: FLUOROURACIL
     Dosage: SINGLE DOSE
     Route: 041
     Dates: start: 20221227, end: 20221227
  63. FLUOROURACIL [Suspect]
     Active Substance: FLUOROURACIL
     Dosage: SINGLE DOSE
     Route: 040
     Dates: start: 20221227, end: 20221227
  64. FLUOROURACIL [Suspect]
     Active Substance: FLUOROURACIL
     Dosage: SINGLE DOSE
     Route: 041
     Dates: start: 20230111, end: 20230111
  65. FLUOROURACIL [Suspect]
     Active Substance: FLUOROURACIL
     Dosage: SINGLE DOSE
     Route: 040
     Dates: start: 20230111, end: 20230111
  66. FLUOROURACIL [Suspect]
     Active Substance: FLUOROURACIL
     Dosage: SINGLE DOSE
     Route: 041
     Dates: start: 20230125, end: 20230125
  67. FLUOROURACIL [Suspect]
     Active Substance: FLUOROURACIL
     Dosage: SINGLE DOSE
     Route: 040
     Dates: start: 20230125, end: 20230125
  68. FLUOROURACIL [Suspect]
     Active Substance: FLUOROURACIL
     Dosage: SINGLE DOSE
     Route: 041
     Dates: start: 20230208, end: 20230208
  69. FLUOROURACIL [Suspect]
     Active Substance: FLUOROURACIL
     Dosage: SINGLE DOSE
     Route: 040
     Dates: start: 20230208, end: 20230208
  70. FLUOROURACIL [Suspect]
     Active Substance: FLUOROURACIL
     Dosage: SINGLE DOSE
     Route: 041
     Dates: start: 20230222, end: 20230222
  71. FLUOROURACIL [Suspect]
     Active Substance: FLUOROURACIL
     Dosage: SINGLE DOSE
     Route: 040
     Dates: start: 20230222, end: 20230222
  72. FLUOROURACIL [Suspect]
     Active Substance: FLUOROURACIL
     Dosage: SINGLE DOSE
     Route: 041
     Dates: start: 20230308, end: 20230308
  73. FLUOROURACIL [Suspect]
     Active Substance: FLUOROURACIL
     Dosage: SINGLE DOSE
     Route: 040
     Dates: start: 20230308, end: 20230308
  74. FLUOROURACIL [Suspect]
     Active Substance: FLUOROURACIL
     Dosage: SINGLE DOSE
     Route: 041
     Dates: start: 20230322, end: 20230322
  75. FLUOROURACIL [Suspect]
     Active Substance: FLUOROURACIL
     Dosage: SINGLE DOSE
     Route: 040
     Dates: start: 20230322, end: 20230322
  76. FLUOROURACIL [Suspect]
     Active Substance: FLUOROURACIL
     Dosage: SINGLE DOSE
     Route: 041
     Dates: start: 20230419, end: 20230419
  77. FLUOROURACIL [Suspect]
     Active Substance: FLUOROURACIL
     Dosage: SINGLE DOSE
     Route: 041
     Dates: start: 20230419, end: 20230419
  78. FLUOROURACIL [Suspect]
     Active Substance: FLUOROURACIL
     Dosage: SINGLE DOSE
     Route: 041
     Dates: start: 20230503, end: 20230503
  79. FLUOROURACIL [Suspect]
     Active Substance: FLUOROURACIL
     Dosage: SINGLE DOSE
     Route: 040
     Dates: start: 20230503, end: 20230503
  80. FLUOROURACIL [Suspect]
     Active Substance: FLUOROURACIL
     Dosage: SINGLE DOSE
     Route: 041
     Dates: start: 20230719, end: 20230719
  81. FLUOROURACIL [Suspect]
     Active Substance: FLUOROURACIL
     Dosage: SINGLE DOSE
     Route: 040
     Dates: start: 20230719, end: 20230719
  82. OXALIPLATIN [Suspect]
     Active Substance: OXALIPLATIN
     Indication: Colorectal cancer
     Route: 041
     Dates: start: 20221115, end: 20221115
  83. OXALIPLATIN [Suspect]
     Active Substance: OXALIPLATIN
     Route: 041
     Dates: start: 20221213, end: 20221213
  84. OXALIPLATIN [Suspect]
     Active Substance: OXALIPLATIN
     Route: 041
     Dates: start: 20221227, end: 20221227
  85. OXALIPLATIN [Suspect]
     Active Substance: OXALIPLATIN
     Route: 041
     Dates: start: 20230113, end: 20230113
  86. OXALIPLATIN [Suspect]
     Active Substance: OXALIPLATIN
     Route: 041
     Dates: start: 20230125, end: 20230125
  87. OXALIPLATIN [Suspect]
     Active Substance: OXALIPLATIN
     Route: 041
     Dates: start: 20230208, end: 20230208
  88. OXALIPLATIN [Suspect]
     Active Substance: OXALIPLATIN
     Route: 041
     Dates: start: 20230222, end: 20230222
  89. OXALIPLATIN [Suspect]
     Active Substance: OXALIPLATIN
     Route: 041
     Dates: start: 20230308, end: 20230308
  90. OXALIPLATIN [Suspect]
     Active Substance: OXALIPLATIN
     Route: 041
     Dates: start: 20230322, end: 20230322
  91. OXALIPLATIN [Suspect]
     Active Substance: OXALIPLATIN
     Route: 041
     Dates: start: 20230419, end: 20230419
  92. OXALIPLATIN [Suspect]
     Active Substance: OXALIPLATIN
     Route: 041
     Dates: start: 20230503, end: 20230503
  93. ATENOLOL [Concomitant]
     Active Substance: ATENOLOL
     Dates: start: 20130701
  94. IBUPROFEN [Concomitant]
     Active Substance: IBUPROFEN
     Dates: start: 2012
  95. TEA LEAF [Concomitant]
     Active Substance: TEA LEAF
     Dates: start: 202208
  96. TEA LEAF [Concomitant]
     Active Substance: TEA LEAF
     Dates: start: 20220801
  97. FISH OIL [Concomitant]
     Active Substance: FISH OIL
     Dates: start: 2022, end: 20230203
  98. FLUTICASONE PROPIONATE [Concomitant]
     Active Substance: FLUTICASONE PROPIONATE
     Indication: Seasonal allergy
  99. ATENOLOL [Concomitant]
     Active Substance: ATENOLOL
     Indication: Hypertension
  100. IBUPROFEN [Concomitant]
     Active Substance: IBUPROFEN
     Indication: Arthralgia
  101. IBUPROFEN [Concomitant]
     Active Substance: IBUPROFEN
     Indication: Bone pain
  102. IBUPROFEN [Concomitant]
     Active Substance: IBUPROFEN
     Indication: Chills
  103. IBUPROFEN [Concomitant]
     Active Substance: IBUPROFEN
     Indication: Headache
  104. TEA LEAF [Concomitant]
     Active Substance: TEA LEAF
  105. FISH OIL [Concomitant]
     Active Substance: FISH OIL
  106. VITAMIN C [Concomitant]
     Active Substance: ASCORBIC ACID
  107. VITAMIN D3 [Concomitant]
     Active Substance: CHOLECALCIFEROL
  108. MAGNESIUM;ZINC [Concomitant]
  109. IMODIUM [Concomitant]
     Active Substance: LOPERAMIDE HYDROCHLORIDE
  110. LOMOTIL [Concomitant]
     Active Substance: ATROPINE SULFATE\DIPHENOXYLATE HYDROCHLORIDE
     Dates: start: 20221117, end: 20221117
  111. FAMOTIDINE [Concomitant]
     Active Substance: FAMOTIDINE
     Dates: start: 20221213, end: 20221213
  112. PALONOSETRON [Concomitant]
     Active Substance: PALONOSETRON
     Dates: start: 20221115, end: 20230322
  113. DEXAMETHASONE [Concomitant]
     Active Substance: DEXAMETHASONE
     Dates: start: 20221115, end: 20221115
  114. GLYCERIN [Concomitant]
     Active Substance: GLYCERIN
     Dates: start: 20221119
  115. LIDOCAINE\PRILOCAINE [Concomitant]
     Active Substance: LIDOCAINE\PRILOCAINE
     Dates: start: 20221130
  116. BENADRYL [Concomitant]
     Active Substance: DIPHENHYDRAMINE HYDROCHLORIDE
     Dates: start: 20221201, end: 20230401
  117. VALIUM [Concomitant]
     Active Substance: DIAZEPAM
     Dates: start: 20221208, end: 20221208
  118. HYDROCORTISONE SODIUM SUCCINATE [Concomitant]
     Active Substance: HYDROCORTISONE SODIUM SUCCINATE
     Dates: start: 20221213, end: 20221213
  119. DIPHENHYDRAMINE [Concomitant]
     Active Substance: DIPHENHYDRAMINE
  120. VALACYCLOVIR HYDROCHLORIDE [Concomitant]
     Active Substance: VALACYCLOVIR HYDROCHLORIDE
  121. PHENOL [Concomitant]
     Active Substance: PHENOL
     Dates: start: 20230115
  122. XYLITOL [Concomitant]
     Active Substance: XYLITOL
     Dates: start: 20230115
  123. METAMUCIL [Concomitant]
     Active Substance: PLANTAGO SEED
  124. TRAMADOL [Concomitant]
     Active Substance: TRAMADOL\TRAMADOL HYDROCHLORIDE
  125. METOCLOPRAMIDE [Concomitant]
     Active Substance: METOCLOPRAMIDE
  126. GABAPENTIN [Concomitant]
     Active Substance: GABAPENTIN
  127. MENTHOL [Concomitant]
     Active Substance: MENTHOL
  128. TOLNAFTATE [Concomitant]
     Active Substance: TOLNAFTATE
  129. NYSTATIN [Concomitant]
     Active Substance: NYSTATIN
  130. MELATONIN [Concomitant]
     Active Substance: MELATONIN
  131. POTASSIUM CHLORIDE [Concomitant]
     Active Substance: POTASSIUM CHLORIDE
  132. TYLENOL [Concomitant]
     Active Substance: ACETAMINOPHEN
  133. KRILL OIL [Concomitant]
     Active Substance: DIETARY SUPPLEMENT\KRILL OIL
  134. ORAGEL MOUTH RINSE [Concomitant]
  135. NEULASTA [Concomitant]
     Active Substance: PEGFILGRASTIM
  136. ONDANSETRON [Concomitant]
     Active Substance: ONDANSETRON
     Dates: start: 20221116
  137. FILGRASTIM [Concomitant]
     Active Substance: FILGRASTIM
     Dates: start: 20221130, end: 20230310
  138. PEGFILGRASTIM [Concomitant]
     Active Substance: PEGFILGRASTIM
     Dates: start: 20220315, end: 20230310

REACTIONS (4)
  - Acute kidney injury [Recovered/Resolved]
  - Disseminated intravascular coagulation [Recovered/Resolved]
  - Leukocytosis [Recovered/Resolved]
  - Disseminated intravascular coagulation [Recovered/Resolved]

NARRATIVE: CASE EVENT DATE: 20230322
